FAERS Safety Report 8041560-1 (Version None)
Quarter: 2012Q1

REPORT INFORMATION
  Report Type: 
  Country: None (occurrence: None)
  Receive Date: 20120112
  Receipt Date: 20120109
  Transmission Date: 20120608
  Serious: Yes (Other)
  Sender: FDA-Public Use
  Company Number: US-JNJFOC-20120103217

PATIENT
  Age: 25 Year
  Sex: Male
  Weight: 59.42 kg

DRUGS (4)
  1. INVEGA [Suspect]
     Indication: SCHIZOPHRENIA
     Route: 048
     Dates: start: 20120104, end: 20120105
  2. SEROQUEL [Concomitant]
     Route: 048
     Dates: end: 20120104
  3. INVEGA SUSTENNA [Suspect]
     Indication: SCHIZOPHRENIA
     Route: 030
     Dates: start: 20120106, end: 20120106
  4. INVEGA [Suspect]
     Route: 048
     Dates: start: 20120106, end: 20120106

REACTIONS (1)
  - HYPERSENSITIVITY [None]
